FAERS Safety Report 8598446-3 (Version None)
Quarter: 2012Q3

REPORT INFORMATION
  Report Type: 
  Country: None (occurrence: None)
  Receive Date: 20120816
  Receipt Date: 20120809
  Transmission Date: 20120928
  Serious: Yes (Death, Life-Threatening, Hospitalization, Disabling)
  Sender: FDA-Public Use
  Company Number: US-ROCHE-1054992

PATIENT
  Sex: Female
  Weight: 57.3 kg

DRUGS (39)
  1. DOCETAXEL [Suspect]
     Indication: BREAST CANCER METASTATIC
     Dosage: LAST DOSE PRIOR TO SAE 09/MAR/2012, LAST DOSE TAKEN: 167 MG
     Route: 042
     Dates: start: 20120106
  2. DEXAMETHASONE [Concomitant]
     Dates: start: 20120106, end: 20120309
  3. PROTONIX [Concomitant]
     Dates: start: 20120327, end: 20120401
  4. ZOSYN [Concomitant]
     Dates: start: 20120330, end: 20120402
  5. INSULIN ASPART [Concomitant]
     Dates: start: 20120330, end: 20120404
  6. UDDERLY SMOOTH CREAM [Concomitant]
     Dates: start: 20120409
  7. BENADRYL [Concomitant]
     Dates: start: 20111219
  8. NAPROXEN [Concomitant]
     Indication: BONE PAIN
     Dates: start: 20111219
  9. CELEXA [Concomitant]
     Indication: DEPRESSION
     Dates: start: 20120106, end: 20120330
  10. ALOXI [Concomitant]
     Indication: NAUSEA
     Dates: start: 20120106, end: 20120309
  11. DIPHENHYDRAMINE HCL [Concomitant]
     Dates: start: 20120106, end: 20120309
  12. ZOMETA [Concomitant]
     Dates: start: 20120127, end: 20120309
  13. PHENERGAN HCL [Concomitant]
     Dates: start: 20111219, end: 20120327
  14. ACETAMINOPHEN [Concomitant]
     Dates: start: 20120221, end: 20120404
  15. FOSPHENYTOIN SODIUM [Concomitant]
     Dates: start: 20120328, end: 20120330
  16. PACLITAXEL [Suspect]
     Indication: BREAST CANCER METASTATIC
     Dosage: LAST DOSE PRIOR TO SAE: 09/MAR/2012
     Route: 042
  17. LORTAB [Concomitant]
     Dates: start: 20120120
  18. LORAZEPAM [Concomitant]
     Dates: start: 20120328, end: 20120404
  19. COCAINE [Concomitant]
     Dates: start: 20120221, end: 20120327
  20. POTASSIUM CHLORIDE [Concomitant]
     Dates: start: 20120309, end: 20120401
  21. CEFTRIAXONE [Concomitant]
     Dates: start: 20120329, end: 20120331
  22. MINERAL OIL [Concomitant]
     Dates: start: 20120327, end: 20120404
  23. LASIX [Concomitant]
     Dates: start: 20120402, end: 20120402
  24. LEVOPHED [Concomitant]
     Dates: start: 20120330
  25. HERCEPTIN [Suspect]
     Indication: BREAST CANCER METASTATIC
     Dosage: LAST DOSE PRIOR TO SAE 09/MAR/2012, LAST DOSE TAKEN: 344 MG
     Route: 042
     Dates: start: 20120106
  26. FERROUS SULFATE TAB [Concomitant]
     Indication: ANAEMIA
     Dates: start: 20111219, end: 20120330
  27. CIPROFLOXACIN [Concomitant]
     Dates: start: 20120222, end: 20120228
  28. DEXTROSE [Concomitant]
     Dates: start: 20120329, end: 20120331
  29. VANCOMYCIN HCL [Concomitant]
     Dates: start: 20120330, end: 20120402
  30. ATIVAN [Concomitant]
     Dates: start: 20120106
  31. NEULASTA [Concomitant]
     Dates: start: 20120107, end: 20120312
  32. ROBAXIN [Concomitant]
     Dates: start: 20120127, end: 20120327
  33. ARTIFICIAL TEARS [Concomitant]
     Dates: start: 20120328, end: 20120403
  34. HYDROCODONE [Concomitant]
     Indication: PAIN
     Dates: start: 20120106
  35. REMERON [Concomitant]
     Dates: start: 20120309, end: 20120327
  36. ZOFRAN [Concomitant]
     Dates: start: 20111219, end: 20120327
  37. HYDROCODONE BITARTRATE + ACETAMINOPHEN [Concomitant]
     Dates: start: 20120221, end: 20120327
  38. MAGNESIUM SULFATE [Concomitant]
     Dates: start: 20120330, end: 20120402
  39. PHENYTOIN SODIUM [Concomitant]
     Dates: start: 20120328, end: 20120403

REACTIONS (7)
  - CONVULSION [None]
  - HYPOTENSION [None]
  - PNEUMONIA STREPTOCOCCAL [None]
  - HAEMORRHAGE INTRACRANIAL [None]
  - ACUTE RESPIRATORY FAILURE [None]
  - FAILURE TO THRIVE [None]
  - SEPSIS [None]
